FAERS Safety Report 24068617 (Version 1)
Quarter: 2024Q3

REPORT INFORMATION
  Report Type: Spontaneous
  Country: AU (occurrence: AU)
  Receive Date: 20240710
  Receipt Date: 20240710
  Transmission Date: 20241017
  Serious: No
  Sender: ROCHE
  Company Number: AU-ROCHE-3513835

PATIENT

DRUGS (2)
  1. VABYSMO [Suspect]
     Active Substance: FARICIMAB\FARICIMAB-SVOA
     Indication: Neovascular age-related macular degeneration
     Route: 065
  2. EYLEA [Concomitant]
     Active Substance: AFLIBERCEPT

REACTIONS (1)
  - Ill-defined disorder [Unknown]
